FAERS Safety Report 16823233 (Version 2)
Quarter: 2019Q4

REPORT INFORMATION
  Report Type: Spontaneous
  Country: FR (occurrence: FR)
  Receive Date: 20190918
  Receipt Date: 20191023
  Transmission Date: 20200122
  Serious: Yes (Other)
  Sender: FDA-Public Use
  Company Number: FR-MYLANLABS-2019M1087093

PATIENT
  Age: 76 Year
  Sex: Male

DRUGS (2)
  1. FENOFIBRATE MYLAN [Suspect]
     Active Substance: FENOFIBRATE
     Indication: PRODUCT USED FOR UNKNOWN INDICATION
     Dosage: UNK
     Dates: start: 20171004, end: 20171017
  2. FENOFIBRATE MYLAN [Suspect]
     Active Substance: FENOFIBRATE
     Dosage: 160 MILLIGRAM
     Dates: start: 2019

REACTIONS (3)
  - Polymyalgia rheumatica [Not Recovered/Not Resolved]
  - C-reactive protein decreased [Unknown]
  - Tendonitis [Unknown]

NARRATIVE: CASE EVENT DATE: 20171012
